FAERS Safety Report 9726260 (Version 1)
Quarter: 2013Q4

REPORT INFORMATION
  Report Type: Spontaneous
  Country: KR (occurrence: KR)
  Receive Date: 20131203
  Receipt Date: 20131203
  Transmission Date: 20140711
  Serious: Yes (Life-Threatening)
  Sender: FDA-Public Use
  Company Number: KR-ROXANE LABORATORIES, INC.-2013-RO-01882RO

PATIENT
  Age: 75 Year
  Sex: Female

DRUGS (10)
  1. OXYCODONE [Suspect]
     Indication: PROCEDURAL PAIN
  2. PREGABALIN [Suspect]
     Indication: PROCEDURAL PAIN
     Route: 048
  3. CELECOXIB [Suspect]
     Indication: PROCEDURAL PAIN
  4. FENTANYL [Concomitant]
     Indication: PROCEDURAL PAIN
     Route: 042
  5. KETOROLAC [Concomitant]
     Indication: PROCEDURAL PAIN
     Route: 042
  6. PROPOFOL [Concomitant]
     Indication: ANAESTHESIA
     Route: 055
  7. ROCURONIUM [Concomitant]
     Indication: ANAESTHESIA
     Route: 055
  8. DESFLURANE [Concomitant]
     Indication: ANAESTHESIA
     Route: 055
  9. PYRIDOSTIGMINE [Concomitant]
     Indication: NEUROMUSCULAR BLOCKADE REVERSAL
     Route: 042
  10. GLYCOPYRROLATE [Concomitant]
     Indication: NEUROMUSCULAR BLOCKADE REVERSAL
     Route: 042

REACTIONS (1)
  - Serotonin syndrome [Recovered/Resolved]
